FAERS Safety Report 9360484 (Version 2)
Quarter: 2013Q4

REPORT INFORMATION
  Report Type: Spontaneous
  Country: US (occurrence: US)
  Receive Date: 20130621
  Receipt Date: 20131018
  Transmission Date: 20140711
  Serious: Yes (Hospitalization)
  Sender: FDA-Public Use
  Company Number: US-BAYER-2013-076459

PATIENT
  Age: 22 Year
  Sex: Female
  Weight: 77.1 kg

DRUGS (26)
  1. YASMIN [Suspect]
     Indication: CONTRACEPTION
     Dosage: UNK
     Dates: start: 200802, end: 2010
  2. YASMIN [Suspect]
     Indication: CONTRACEPTION
     Dosage: UNK
     Dates: start: 200802, end: 2010
  3. OCELLA [Suspect]
     Indication: CONTRACEPTION
     Dosage: UNK
     Dates: start: 2008, end: 2010
  4. OCELLA [Suspect]
     Indication: CONTRACEPTION
     Dosage: UNK
     Dates: start: 2008, end: 2010
  5. SLOW FE [Concomitant]
     Dosage: 142 MG, DAILY
     Route: 048
  6. MACROBID [Concomitant]
     Dosage: 100 MG, EVERY 12 HOURS FOR 7 DAYS
     Route: 048
  7. ZOFRAN [Concomitant]
     Dosage: 4 MG, UNK
     Route: 042
     Dates: start: 20111213
  8. PHENERGAN [Concomitant]
     Dosage: 25 MG, UNK
     Route: 030
     Dates: start: 20111213
  9. ANCEF [Concomitant]
     Dosage: 1 GM EVERY 6 HOURS
     Route: 042
  10. KEFLEX [Concomitant]
     Dosage: 500 MG, TID FOR 5 DAYS
  11. LIDOCAINE [Concomitant]
     Indication: EPIDURAL ANAESTHESIA
     Dosage: UNK
     Dates: start: 20120109
  12. DEMEROL [Concomitant]
     Dosage: UNK
     Dates: start: 20111213
  13. DEMEROL [Concomitant]
     Dosage: UNK
     Dates: start: 20120109
  14. BUPIVACAINE [Concomitant]
     Indication: EPIDURAL ANAESTHESIA
     Dosage: UNK
     Dates: start: 20120109
  15. FENTANYL [Concomitant]
     Dosage: UNK
     Dates: start: 20120109
  16. IBUPROFEN [Concomitant]
     Dosage: 600 MG, UNK
     Dates: start: 20120109
  17. TUCKS [Concomitant]
     Indication: HAEMORRHOIDS
     Dosage: UNK
     Route: 061
     Dates: start: 20120109
  18. AMBIEN [Concomitant]
     Indication: SLEEP DISORDER
     Dosage: 10 MG, HS
     Route: 048
     Dates: start: 20111214
  19. AMBIEN [Concomitant]
     Indication: SLEEP DISORDER
     Dosage: UNK
     Dates: start: 20120109
  20. PITOCIN [Concomitant]
     Dosage: 20 UNITS
     Route: 042
     Dates: start: 20120109
  21. ATIVAN [Concomitant]
     Dosage: 1 MG, UNK
     Route: 042
     Dates: start: 20120109
  22. STADOL [Concomitant]
     Dosage: 2 MG, UNK
     Route: 042
     Dates: start: 20111213
  23. STADOL [Concomitant]
     Dosage: UNK
     Dates: start: 20120109
  24. COLACE [Concomitant]
     Dosage: 100 MG, BID
     Route: 048
  25. PERCOCET [Concomitant]
     Dosage: 5/325 EVERY 4 HOURS
  26. DILAUDID [Concomitant]

REACTIONS (9)
  - Cholelithiasis [None]
  - Cholecystitis acute [None]
  - Pain [None]
  - Injury [None]
  - Anxiety [None]
  - Chest pain [None]
  - Back pain [None]
  - Abdominal pain [None]
  - Scar [None]
